FAERS Safety Report 19799291 (Version 2)
Quarter: 2022Q2

REPORT INFORMATION
  Report Type: Spontaneous
  Country: US (occurrence: US)
  Receive Date: 20210907
  Receipt Date: 20220426
  Transmission Date: 20220721
  Serious: No
  Sender: FDA-Public Use
  Company Number: US-PFIZER INC-202101138888

PATIENT
  Age: 58 Year
  Sex: Female
  Weight: 108.86 kg

DRUGS (2)
  1. CHANTIX [Suspect]
     Active Substance: VARENICLINE TARTRATE
     Indication: Smoking cessation therapy
     Dosage: 1 MG, 1X/DAY
  2. CHANTIX [Suspect]
     Active Substance: VARENICLINE TARTRATE
     Dosage: 0.5 DF, (CUTTING THE 1MG TABLETS IN HALF AND TAKING HALF OF A TABLET)

REACTIONS (4)
  - Nausea [Unknown]
  - Abdominal discomfort [Unknown]
  - Recalled product administered [Unknown]
  - Wrong technique in product usage process [Unknown]
